FAERS Safety Report 5815607-4 (Version None)
Quarter: 2008Q3

REPORT INFORMATION
  Report Type: 
  Country: None (occurrence: None)
  Receive Date: 20080716
  Receipt Date: 20080702
  Transmission Date: 20090109
  Serious: Yes (Life-Threatening, Hospitalization)
  Sender: FDA-Public Use
  Company Number: 1419181-2008-00001

PATIENT
  Sex: Male
  Weight: 87.0906 kg

DRUGS (3)
  1. SAGE 2% CHLORHEXIDINE GLUCONATE CLOTH [Suspect]
     Indication: INFECTION PROPHYLAXIS
     Dosage: 1000MG DAILY TOPICAL
     Route: 061
     Dates: start: 20080611, end: 20080701
  2. VENTILATOR [Concomitant]
  3. HEMODIALYSIS [Concomitant]

REACTIONS (3)
  - PHARMACEUTICAL PRODUCT COMPLAINT [None]
  - PNEUMONIA [None]
  - SEPSIS [None]
